FAERS Safety Report 4559702-9 (Version None)
Quarter: 2005Q1

REPORT INFORMATION
  Report Type: 
  Country: None (occurrence: None)
  Receive Date: 20050107
  Receipt Date: 20041022
  Transmission Date: 20050727
  Serious: Yes (Other)
  Sender: FDA-Public Use
  Company Number: HQWYE056726OCT04

PATIENT
  Sex: 0

DRUGS (1)
  1. CORDARONE [Suspect]

REACTIONS (1)
  - THROMBOCYTOPENIA [None]
